FAERS Safety Report 11135229 (Version 1)
Quarter: 2015Q2

REPORT INFORMATION
  Report Type: Spontaneous
  Country: US (occurrence: US)
  Receive Date: 20150525
  Receipt Date: 20150525
  Transmission Date: 20150821
  Serious: Yes (Hospitalization)
  Sender: FDA-Public Use
  Company Number: PHHY2015US058320

PATIENT
  Sex: Female

DRUGS (7)
  1. HALOPERIDOL DECANOATE. [Interacting]
     Active Substance: HALOPERIDOL DECANOATE
     Indication: SCHIZOPHRENIA
     Dosage: 200 MG, UNK
     Route: 030
  2. ABOPRETTEN [Concomitant]
     Indication: ANXIETY
     Route: 065
  3. DONEPEZIL [Suspect]
     Active Substance: DONEPEZIL
     Indication: DEMENTIA
     Dosage: 5 MG, QD
     Route: 065
  4. FLUVOXAMINE [Concomitant]
     Active Substance: FLUVOXAMINE
     Indication: OBSESSIVE-COMPULSIVE DISORDER
     Dosage: 150 MG, QD
     Route: 065
  5. BENZTROPINE [Concomitant]
     Active Substance: BENZTROPINE
     Indication: PRODUCT USED FOR UNKNOWN INDICATION
     Dosage: 1 MG, BID
     Route: 065
  6. BENZTROPINE [Concomitant]
     Active Substance: BENZTROPINE
     Dosage: 0.5 MG, TID
  7. LORAZEPAM. [Concomitant]
     Active Substance: LORAZEPAM
     Indication: ANXIETY
     Route: 065

REACTIONS (13)
  - Decreased appetite [Recovered/Resolved]
  - Hyperthermia [Recovered/Resolved]
  - Drug interaction [Recovered/Resolved]
  - Extrapyramidal disorder [Recovered/Resolved]
  - Cognitive disorder [Recovered/Resolved]
  - Hypertension [Recovered/Resolved]
  - Drooling [Recovered/Resolved]
  - Nausea [Recovered/Resolved]
  - Vomiting [Recovered/Resolved]
  - Muscle rigidity [Recovered/Resolved]
  - Neuroleptic malignant syndrome [Recovered/Resolved]
  - Tachycardia [Recovered/Resolved]
  - Dementia [Recovered/Resolved]
